FAERS Safety Report 10407563 (Version 2)
Quarter: 2014Q3

REPORT INFORMATION
  Report Type: Spontaneous
  Country: US (occurrence: US)
  Receive Date: 20140825
  Receipt Date: 20140825
  Transmission Date: 20150326
  Serious: No
  Sender: FDA-Public Use
  Company Number: US-BRACCO-010014

PATIENT
  Age: 70 Year
  Sex: Female

DRUGS (7)
  1. CHOLETEC [Concomitant]
     Active Substance: TECHNETIUM TC-99M MEBROFENIN
     Indication: HEPATOBILIARY SCAN
     Route: 042
     Dates: start: 20130702, end: 20130702
  2. SALINE [Concomitant]
     Active Substance: SODIUM CHLORIDE
     Route: 041
     Dates: start: 20130702, end: 20130702
  3. PROTONIX [Concomitant]
     Active Substance: PANTOPRAZOLE SODIUM
  4. XANAX [Concomitant]
     Active Substance: ALPRAZOLAM
  5. TOPROL XL [Concomitant]
     Active Substance: METOPROLOL SUCCINATE
     Dosage: IN THE MORNING AND NIGHT TIME
  6. DIOVAN [Concomitant]
     Active Substance: VALSARTAN
     Route: 048
  7. KINEVAC [Suspect]
     Active Substance: SINCALIDE
     Indication: HEPATOBILIARY SCAN
     Route: 041
     Dates: start: 20130702, end: 20130702

REACTIONS (4)
  - Lactose intolerance [Not Recovered/Not Resolved]
  - Diarrhoea [Unknown]
  - Dysgeusia [Recovering/Resolving]
  - Weight decreased [Unknown]

NARRATIVE: CASE EVENT DATE: 20130703
